FAERS Safety Report 6314706-0 (Version None)
Quarter: 2009Q3

REPORT INFORMATION
  Report Type: 
  Country: None (occurrence: None)
  Receive Date: 20090819
  Receipt Date: 20090807
  Transmission Date: 20100115
  Serious: Yes (Hospitalization)
  Sender: FDA-Public Use
  Company Number: FI-BAYER-200928031GPV

PATIENT
  Age: 33 Year
  Sex: Female

DRUGS (3)
  1. YASMIN [Suspect]
     Indication: CONTRACEPTION
     Route: 048
     Dates: start: 20080101, end: 20090101
  2. HYDRO TECH [Suspect]
     Indication: MEDICAL DIET
     Dosage: 8 TABLETS PER DAY
     Route: 048
     Dates: start: 20090520, end: 20090701
  3. C 4 SYSTEM EVO 3 [Suspect]
     Indication: MEDICAL DIET
     Dosage: 6 TABLETS PER DAY
     Route: 048
     Dates: start: 20090520, end: 20090701

REACTIONS (9)
  - ALANINE AMINOTRANSFERASE INCREASED [None]
  - ASPARTATE AMINOTRANSFERASE INCREASED [None]
  - BLOOD ALKALINE PHOSPHATASE INCREASED [None]
  - BLOOD BILIRUBIN INCREASED [None]
  - JAUNDICE [None]
  - NAUSEA [None]
  - PRURITUS [None]
  - PYREXIA [None]
  - THROMBIN TIME ABNORMAL [None]
